FAERS Safety Report 7584436-6 (Version None)
Quarter: 2011Q2

REPORT INFORMATION
  Report Type: 
  Country: None (occurrence: None)
  Receive Date: 20110630
  Receipt Date: 20110621
  Transmission Date: 20111010
  Serious: Yes (Hospitalization)
  Sender: FDA-Public Use
  Company Number: US-CEPHALON-2011003235

PATIENT
  Sex: Female
  Weight: 136 kg

DRUGS (3)
  1. OXYCONTIN [Concomitant]
     Indication: BACK PAIN
     Dates: start: 20050101
  2. OPANA [Concomitant]
     Indication: BREAKTHROUGH PAIN
     Route: 048
     Dates: start: 20110614
  3. FENTORA [Suspect]
     Indication: BACK PAIN
     Route: 002
     Dates: start: 20110616

REACTIONS (6)
  - DRUG PRESCRIBING ERROR [None]
  - APPLICATION SITE PAIN [None]
  - SPINAL NERVE STIMULATOR IMPLANTATION [None]
  - DRUG INEFFECTIVE FOR UNAPPROVED INDICATION [None]
  - TONGUE BLISTERING [None]
  - APPLICATION SITE VESICLES [None]
